FAERS Safety Report 8274174-9 (Version None)
Quarter: 2012Q2

REPORT INFORMATION
  Report Type: 
  Country: None (occurrence: None)
  Receive Date: 20120411
  Receipt Date: 20120405
  Transmission Date: 20120825
  Serious: Yes (Other)
  Sender: FDA-Public Use
  Company Number: US-UCBSA-054884

PATIENT
  Age: 3 Year
  Sex: Male

DRUGS (3)
  1. VIMPAT [Suspect]
     Dosage: UNKNOWN
     Dates: end: 20120101
  2. LEVETIRACETAM [Concomitant]
     Dosage: 100MG/ML
  3. VIMPAT [Suspect]
     Indication: CONVULSION
     Dosage: DOSE INCREASED
     Dates: start: 20120101, end: 20120101

REACTIONS (1)
  - CONVULSION [None]
